FAERS Safety Report 4804956-4 (Version None)
Quarter: 2005Q4

REPORT INFORMATION
  Report Type: 
  Country: None (occurrence: None)
  Receive Date: 20051017
  Receipt Date: 20051007
  Transmission Date: 20060501
  Serious: Yes (Other)
  Sender: FDA-Public Use
  Company Number: 2005-09-0927

PATIENT
  Age: 46 Year
  Sex: Female
  Weight: 65 kg

DRUGS (8)
  1. VIRAFERONPEG (PEG INTERFERON ALFA-2B RECOMBINANT) REDIPEN (LIKE PEG-IN [Suspect]
     Indication: HEPATITIS C
     Dosage: 100-50 UG QWK SUBCUTANEO
     Route: 058
     Dates: start: 20050905, end: 20050909
  2. VIRAFERONPEG (PEG INTERFERON ALFA-2B RECOMBINANT) REDIPEN (LIKE PEG-IN [Suspect]
     Indication: HEPATITIS C
     Dosage: 100-50 UG QWK SUBCUTANEO
     Route: 058
     Dates: start: 20050905
  3. VIRAFERONPEG (PEG INTERFERON ALFA-2B RECOMBINANT) REDIPEN (LIKE PEG-IN [Suspect]
     Indication: HEPATITIS C
     Dosage: 100-50 UG QWK SUBCUTANEO
     Route: 058
     Dates: start: 20050916
  4. REBETOL [Suspect]
     Indication: HEPATITIS C
     Dosage: 1000 MG QD ORAL
     Route: 048
     Dates: start: 20050905, end: 20050909
  5. REBETOL [Suspect]
     Indication: HEPATITIS C
     Dosage: 1000 MG QD ORAL
     Route: 048
     Dates: start: 20050905
  6. REBETOL [Suspect]
     Indication: HEPATITIS C
     Dosage: 1000 MG QD ORAL
     Route: 048
     Dates: start: 20050916
  7. ZELITREX (VALACICLOVIR) [Suspect]
     Indication: HERPES SIMPLEX
     Dosage: 500 MG BID ORAL
     Route: 048
     Dates: start: 20050902, end: 20050909
  8. ZOVIRAX [Suspect]
     Indication: HERPES SIMPLEX
     Dosage: 1 TAB QD
     Dates: start: 20050902, end: 20050909

REACTIONS (4)
  - DRUG INTERACTION [None]
  - LEUKOPENIA [None]
  - MENORRHAGIA [None]
  - THROMBOCYTOPENIA [None]
